FAERS Safety Report 10686808 (Version 4)
Quarter: 2015Q1

REPORT INFORMATION
  Report Type: Spontaneous
  Country: FR (occurrence: FR)
  Receive Date: 20150101
  Receipt Date: 20150206
  Transmission Date: 20150720
  Serious: Yes (Life-Threatening, Hospitalization, Other)
  Sender: FDA-Public Use
  Company Number: FR-GLAXOSMITHKLINE-FR2014GSK007125

PATIENT
  Age: 28 Year
  Sex: Female

DRUGS (4)
  1. ATARAX 25 [Concomitant]
     Dosage: 25 MG, SINGLE
     Route: 048
     Dates: start: 20140529, end: 20140529
  2. LOXEN [Suspect]
     Active Substance: NICARDIPINE HYDROCHLORIDE
     Indication: THREATENED LABOUR
     Dosage: UNK
     Dates: start: 20140530
  3. ADALAT CC [Suspect]
     Active Substance: NIFEDIPINE
     Indication: THREATENED LABOUR
     Dosage: 20 MG
     Dates: start: 20140529, end: 20140529
  4. SALBUMOL FORT [Suspect]
     Active Substance: ALBUTEROL SULFATE
     Indication: THREATENED LABOUR
     Dosage: 5 MG/5 ML, 20 ML/H
     Dates: start: 20140529

REACTIONS (6)
  - Exposure during pregnancy [Unknown]
  - Delivery [Unknown]
  - Dyspnoea [Unknown]
  - Acute pulmonary oedema [Recovered/Resolved]
  - Oxygen saturation decreased [Unknown]
  - Chest pain [Recovered/Resolved]

NARRATIVE: CASE EVENT DATE: 20140529
